FAERS Safety Report 4398889-8 (Version None)
Quarter: 2004Q3

REPORT INFORMATION
  Report Type: 
  Country: None (occurrence: None)
  Receive Date: 20040712
  Receipt Date: 20040622
  Transmission Date: 20050211
  Serious: Yes (Hospitalization)
  Sender: FDA-Public Use
  Company Number: USA040670704

PATIENT
  Sex: Female

DRUGS (1)
  1. GEMZAR [Suspect]

REACTIONS (3)
  - GLOMERULONEPHRITIS [None]
  - NEPHROPATHY TOXIC [None]
  - SYSTEMIC LUPUS ERYTHEMATOSUS [None]
